FAERS Safety Report 12962148 (Version 3)
Quarter: 2017Q1

REPORT INFORMATION
  Report Type: Spontaneous
  Country: US (occurrence: US)
  Receive Date: 20161121
  Receipt Date: 20170224
  Transmission Date: 20170428
  Serious: Yes (Death, Hospitalization, Other)
  Sender: FDA-Public Use
  Company Number: US-PFIZER INC-2016539954

PATIENT
  Age: 97 Year
  Sex: Female
  Weight: 58 kg

DRUGS (1)
  1. ADVIL PM [Suspect]
     Active Substance: DIPHENHYDRAMINE CITRATE\IBUPROFEN
     Indication: SLEEP DISORDER
     Dosage: 2 DF, DAILY (AT NIGHT)
     Dates: start: 2015

REACTIONS (3)
  - Product contamination physical [Recovered/Resolved]
  - Sepsis [Fatal]
  - Poor quality drug administered [Unknown]

NARRATIVE: CASE EVENT DATE: 2015
